FAERS Safety Report 23749157 (Version 1)
Quarter: 2024Q2

REPORT INFORMATION
  Report Type: Spontaneous
  Country: US (occurrence: None)
  Receive Date: 20240416
  Receipt Date: 20240416
  Transmission Date: 20240716
  Serious: No
  Sender: FDA-Public Use
  Company Number: None

PATIENT
  Age: 70 Year
  Sex: Female
  Weight: 57.6 kg

DRUGS (2)
  1. LEVOFLOXACIN [Suspect]
     Active Substance: LEVOFLOXACIN
     Indication: Upper respiratory tract infection
     Dosage: OTHER QUANTITY : 1 TABLET(S);?FREQUENCY : DAILY;?
     Route: 048
     Dates: start: 20240412, end: 20240412
  2. LEVOFLOXACIN [Suspect]
     Active Substance: LEVOFLOXACIN
     Indication: Ear infection

REACTIONS (11)
  - Heart rate increased [None]
  - Hypoaesthesia [None]
  - Hypoaesthesia [None]
  - Dry mouth [None]
  - Hypoaesthesia oral [None]
  - Hypoaesthesia oral [None]
  - Tremor [None]
  - Gait disturbance [None]
  - Feeling abnormal [None]
  - Presyncope [None]
  - Dysgeusia [None]
